FAERS Safety Report 5006762-7 (Version None)
Quarter: 2006Q2

REPORT INFORMATION
  Report Type: 
  Country: None (occurrence: None)
  Receive Date: 20060516
  Receipt Date: 20060502
  Transmission Date: 20061013
  Serious: Yes (Hospitalization)
  Sender: FDA-Public Use
  Company Number: 2006RR-02182

PATIENT
  Age: 64 Year
  Sex: Male

DRUGS (4)
  1. CANDESARTAN  CILEXETIL +HYDROCHLOROTHIAZIDE (HYDROCHLOROTHIAZIDE, CAND [Suspect]
     Indication: HYPERTENSION
     Dosage: 12.5 MG, ORAL
     Route: 048
     Dates: start: 20021012
  2. ATACAND [Concomitant]
  3. FLECAINIDE ACETATE [Concomitant]
  4. ATORVASTATIN CALCIUM [Concomitant]

REACTIONS (9)
  - BLOOD PRESSURE DECREASED [None]
  - FLUSHING [None]
  - HYPERHIDROSIS [None]
  - IDIOSYNCRATIC DRUG REACTION [None]
  - LEUKOCYTOSIS [None]
  - LEUKOPENIA [None]
  - PLEURAL EFFUSION [None]
  - PULMONARY OEDEMA [None]
  - VOMITING [None]
